FAERS Safety Report 10184106 (Version 1)
Quarter: 2014Q2

REPORT INFORMATION
  Report Type: Spontaneous
  Country: US (occurrence: US)
  Receive Date: 20140520
  Receipt Date: 20140520
  Transmission Date: 20141212
  Serious: No
  Sender: FDA-Public Use
  Company Number: US-ASTRAZENECA-2013SE66209

PATIENT
  Age: 64 Year
  Sex: Female
  Weight: 88.5 kg

DRUGS (11)
  1. ENTOCORT EC [Suspect]
     Indication: COLITIS MICROSCOPIC
     Route: 048
     Dates: start: 2011, end: 20130813
  2. ENTOCORT EC [Suspect]
     Indication: COLITIS MICROSCOPIC
     Route: 048
  3. DIOVAN [Concomitant]
     Indication: BLOOD PRESSURE
  4. LEVOTHYROXINE [Concomitant]
     Indication: THYROID DISORDER
  5. CALCIUM [Concomitant]
  6. VITAMIN C [Concomitant]
  7. FISH OIL [Concomitant]
  8. PREDNISONE [Concomitant]
     Indication: INFECTION
  9. AUGMENTIN [Concomitant]
     Indication: INFECTION
  10. BIAXIN [Concomitant]
     Indication: INFECTION
  11. LEVAQUIN [Concomitant]
     Indication: INFECTION

REACTIONS (9)
  - Bronchitis [Unknown]
  - Ear infection [Unknown]
  - Candida infection [Unknown]
  - Vulvovaginal mycotic infection [Unknown]
  - Gastrointestinal disorder [Unknown]
  - Gastrointestinal pain [Unknown]
  - Flatulence [Unknown]
  - Off label use [Unknown]
  - Intentional product misuse [Unknown]
